FAERS Safety Report 8243938-X (Version None)
Quarter: 2012Q1

REPORT INFORMATION
  Report Type: 
  Country: None (occurrence: None)
  Receive Date: 20120329
  Receipt Date: 20110808
  Transmission Date: 20120608
  Serious: No
  Sender: FDA-Public Use
  Company Number: US-MYLANLABS-2011S1016665

PATIENT
  Age: 69 Year
  Sex: Female
  Weight: 76.66 kg

DRUGS (1)
  1. ESTRADIOL [Suspect]
     Indication: HORMONE REPLACEMENT THERAPY
     Dosage: CHANGES Q.W.
     Route: 062
     Dates: start: 20050101

REACTIONS (1)
  - APPLICATION SITE ERYTHEMA [None]
